FAERS Safety Report 6432000-4 (Version None)
Quarter: 2009Q4

REPORT INFORMATION
  Report Type: 
  Country: None (occurrence: None)
  Receive Date: 20091109
  Receipt Date: 20091029
  Transmission Date: 20100525
  Serious: Yes (Other)
  Sender: FDA-Public Use
  Company Number: US-JNJFOC-20091102061

PATIENT
  Sex: Male
  Weight: 95.26 kg

DRUGS (5)
  1. RISPERIDONE [Suspect]
     Route: 048
  2. RISPERIDONE [Suspect]
     Indication: SCHIZOPHRENIA
     Route: 048
  3. ROPINIROLE [Suspect]
     Indication: DRUG USE FOR UNKNOWN INDICATION
     Route: 048
  4. RISPERDAL [Concomitant]
     Indication: SCHIZOPHRENIA
     Route: 048
  5. VITAMIN [Concomitant]
     Indication: GENERAL PHYSICAL CONDITION
     Route: 048

REACTIONS (4)
  - BLOOD CHOLESTEROL INCREASED [None]
  - BLOOD TRIGLYCERIDES DECREASED [None]
  - DRUG DISPENSING ERROR [None]
  - SOMNOLENCE [None]
